FAERS Safety Report 17106688 (Version 1)
Quarter: 2019Q4

REPORT INFORMATION
  Report Type: Spontaneous
  Country: CN (occurrence: CN)
  Receive Date: 20191203
  Receipt Date: 20191203
  Transmission Date: 20200122
  Serious: Yes (Life-Threatening, Hospitalization, Other)
  Sender: FDA-Public Use
  Company Number: CN-BAYER-2019-213841

PATIENT
  Age: 57 Year
  Sex: Male
  Weight: 62 kg

DRUGS (3)
  1. STIVARGA [Suspect]
     Active Substance: REGORAFENIB
     Indication: COLORECTAL CANCER
     Dosage: UNK
     Route: 048
     Dates: start: 201905, end: 201906
  2. STIVARGA [Suspect]
     Active Substance: REGORAFENIB
     Indication: METASTASES TO LIVER
     Dosage: 120 MG, QD
     Route: 048
     Dates: start: 20191105, end: 20191112
  3. STIVARGA [Suspect]
     Active Substance: REGORAFENIB
     Indication: METASTASES TO LUNG

REACTIONS (16)
  - Liver injury [None]
  - Oedema peripheral [Recovering/Resolving]
  - Gastrointestinal haemorrhage [Recovering/Resolving]
  - Asthma [Recovering/Resolving]
  - Blood loss anaemia [Recovering/Resolving]
  - Asthenia [Recovering/Resolving]
  - Off label use [None]
  - Haematemesis [Recovering/Resolving]
  - Cough [Recovering/Resolving]
  - Pyrexia [Recovering/Resolving]
  - Transaminases increased [None]
  - Dyspnoea [Recovering/Resolving]
  - Pulmonary hilum mass [Recovering/Resolving]
  - Blood potassium decreased [Recovering/Resolving]
  - Suffocation feeling [Recovering/Resolving]
  - General physical health deterioration [Recovering/Resolving]

NARRATIVE: CASE EVENT DATE: 201906
